FAERS Safety Report 9371392 (Version 2)
Quarter: 2013Q3

REPORT INFORMATION
  Report Type: Spontaneous
  Country: FR (occurrence: FR)
  Receive Date: 20130627
  Receipt Date: 20130705
  Transmission Date: 20140515
  Serious: Yes (Death, Hospitalization, Other)
  Sender: FDA-Public Use
  Company Number: FR-JNJFOC-20130214370

PATIENT
  Age: 68 Year
  Sex: Male
  Weight: 70 kg

DRUGS (10)
  1. DUROGESIC [Suspect]
     Indication: CANCER PAIN
     Route: 062
  2. DUROGESIC [Suspect]
     Indication: CANCER PAIN
     Route: 062
     Dates: start: 20130318
  3. DUROGESIC [Suspect]
     Indication: CANCER PAIN
     Route: 062
     Dates: start: 2013
  4. OXYNORM [Suspect]
     Indication: CANCER PAIN
     Route: 048
     Dates: start: 20130219, end: 20130222
  5. INEXIUM [Concomitant]
     Indication: GASTROOESOPHAGEAL REFLUX DISEASE
     Dosage: 1 TO 2 PER DAY
     Route: 048
     Dates: start: 20130219
  6. SOLUPRED [Concomitant]
     Indication: NAUSEA
     Dosage: TWICE IN THE MORNING
     Route: 048
     Dates: start: 20130219
  7. DOLIPRANE [Concomitant]
     Indication: PAIN
     Dosage: IF NEEDED
     Route: 048
     Dates: start: 20130219
  8. GAVISCON NOS [Concomitant]
     Indication: DYSPEPSIA
     Dosage: IF NEEDED
     Route: 048
     Dates: start: 20130219
  9. INNOHEP [Concomitant]
     Indication: PHLEBITIS
     Route: 058
     Dates: start: 20130219
  10. SEVREDOL [Concomitant]
     Indication: CANCER PAIN
     Route: 065

REACTIONS (7)
  - Metastases to bone [Fatal]
  - Confusional state [Unknown]
  - Fall [Unknown]
  - Decreased appetite [Not Recovered/Not Resolved]
  - Weight decreased [Unknown]
  - Nausea [Unknown]
  - Fatigue [Unknown]
